FAERS Safety Report 11314271 (Version 1)
Quarter: 2015Q3

REPORT INFORMATION
  Report Type: Spontaneous
  Country: US (occurrence: US)
  Receive Date: 20150727
  Receipt Date: 20150727
  Transmission Date: 20151125
  Serious: No
  Sender: FDA-Public Use
  Company Number: US-GALDERMA-US14002088

PATIENT
  Sex: Female

DRUGS (1)
  1. ADAPALENE (ADAPALENE) CREAM, 0.1% [Suspect]
     Active Substance: ADAPALENE
     Indication: ACNE
     Dates: start: 2013, end: 2013

REACTIONS (4)
  - Erythema [Recovered/Resolved]
  - Skin burning sensation [Recovered/Resolved]
  - Skin irritation [Recovered/Resolved]
  - Drug ineffective [Recovered/Resolved]

NARRATIVE: CASE EVENT DATE: 2013
